FAERS Safety Report 11007551 (Version 2)
Quarter: 2015Q2

REPORT INFORMATION
  Report Type: Spontaneous
  Country: US (occurrence: US)
  Receive Date: 20150409
  Receipt Date: 20150525
  Transmission Date: 20150821
  Serious: No
  Sender: FDA-Public Use
  Company Number: US-JNJFOC-20131000635

PATIENT
  Age: 72 Year
  Sex: Female
  Weight: 71.67 kg

DRUGS (9)
  1. THYROXINE [Concomitant]
     Active Substance: LEVOTHYROXINE
     Indication: AUTOIMMUNE THYROIDITIS
     Route: 065
     Dates: start: 199612
  2. LOSARTAN [Concomitant]
     Active Substance: LOSARTAN
     Indication: BLOOD PRESSURE
     Dosage: 100 MG/ 12.5 MG
     Route: 048
  3. METHOTREXATE [Concomitant]
     Active Substance: METHOTREXATE
     Indication: PSORIATIC ARTHROPATHY
     Route: 048
     Dates: start: 201305
  4. ALEVE [Concomitant]
     Active Substance: NAPROXEN SODIUM
     Indication: PAIN
     Route: 048
  5. CALCIUM AND VIT D [Concomitant]
     Indication: BONE DISORDER
     Route: 048
  6. ANASTROZOLE. [Concomitant]
     Active Substance: ANASTROZOLE
     Indication: BREAST CANCER
     Route: 048
     Dates: start: 2009
  7. FOLIC ACID. [Concomitant]
     Active Substance: FOLIC ACID
     Indication: BONE DISORDER
     Route: 048
     Dates: start: 2010
  8. DILTIAZEM [Concomitant]
     Active Substance: DILTIAZEM
     Indication: BLOOD PRESSURE
     Route: 048
  9. REMICADE [Suspect]
     Active Substance: INFLIXIMAB
     Indication: PSORIATIC ARTHROPATHY
     Route: 042
     Dates: start: 20130618, end: 20130815

REACTIONS (2)
  - Premenstrual syndrome [Recovered/Resolved]
  - Pain in extremity [Not Recovered/Not Resolved]

NARRATIVE: CASE EVENT DATE: 20130618
